FAERS Safety Report 5694830-6 (Version None)
Quarter: 2008Q2

REPORT INFORMATION
  Report Type: 
  Country: None (occurrence: None)
  Receive Date: 20080404
  Receipt Date: 20080331
  Transmission Date: 20081010
  Serious: Yes (Other)
  Sender: FDA-Public Use
  Company Number: US-ASTRAZENECA-2008UW06432

PATIENT
  Age: 80 Year
  Sex: Female
  Weight: 71.7 kg

DRUGS (2)
  1. ARIMIDEX [Suspect]
     Indication: BREAST CANCER
     Route: 048
     Dates: start: 20060101
  2. BENAZEPRIL HYDROCHLORIDE [Concomitant]

REACTIONS (2)
  - DISEASE RECURRENCE [None]
  - SURGERY [None]
